FAERS Safety Report 16688688 (Version 2)
Quarter: 2019Q3

REPORT INFORMATION
  Report Type: Spontaneous
  Country: US (occurrence: US)
  Receive Date: 20190809
  Receipt Date: 20190927
  Transmission Date: 20191004
  Serious: Yes (Other)
  Sender: FDA-Public Use
  Company Number: US-ASTRAZENECA-2019SF12517

PATIENT
  Age: 29161 Day
  Sex: Female
  Weight: 117.9 kg

DRUGS (1)
  1. BYETTA [Suspect]
     Active Substance: EXENATIDE
     Route: 058

REACTIONS (8)
  - Body height decreased [Unknown]
  - Device leakage [Unknown]
  - Blood glucose increased [Unknown]
  - Incorrect dose administered [Unknown]
  - Device failure [Unknown]
  - Cataract [Unknown]
  - Osteopenia [Unknown]
  - Blindness [Unknown]

NARRATIVE: CASE EVENT DATE: 20190730
